FAERS Safety Report 8730484 (Version 3)
Quarter: 2012Q4

REPORT INFORMATION
  Report Type: 
  Country: US (occurrence: US)
  Receive Date: 20120817
  Receipt Date: 20121004
  Transmission Date: 20130627
  Serious: Yes (Death, Hospitalization)
  Sender: FDA-Public Use
  Company Number: US-AMGEN-USASP2012051354

PATIENT
  Age: 74 Year
  Sex: Female
  Weight: 63.95 kg

DRUGS (13)
  1. PROLIA [Suspect]
     Indication: OSTEOPOROSIS POSTMENOPAUSAL
     Dates: start: 20120803
  2. VITAMIN D3 [Concomitant]
  3. LIPITOR [Concomitant]
  4. RANITIDINE [Concomitant]
  5. CELEBREX [Concomitant]
  6. VERAPAMIL [Concomitant]
  7. CYMBALTA [Concomitant]
  8. OXYCODONE [Concomitant]
  9. OXYCONTIN [Concomitant]
  10. NEXIUM                             /01479302/ [Concomitant]
  11. LISINOPRIL + HIDROCLOROTIAZIDA [Concomitant]
     Dosage: UNK
  12. CALCIUM + VITAMIN D [Concomitant]
     Dosage: UNK
  13. ALBUTEROL                          /00139501/ [Concomitant]

REACTIONS (1)
  - Staphylococcal sepsis [Fatal]
